FAERS Safety Report 17508919 (Version 1)
Quarter: 2020Q1

REPORT INFORMATION
  Report Type: Spontaneous
  Country: PL (occurrence: PL)
  Receive Date: 20200306
  Receipt Date: 20200306
  Transmission Date: 20200409
  Serious: Yes (Other)
  Sender: FDA-Public Use
  Company Number: PL-AMGEN-POLSP2020036419

PATIENT
  Age: 71 Year
  Sex: Female

DRUGS (3)
  1. IRON [Concomitant]
     Active Substance: IRON
     Indication: NEPHROGENIC ANAEMIA
     Dosage: 100 MILLIGRAM, EVERY OTHER DAY
  2. DARBEPOETIN ALFA [Suspect]
     Active Substance: DARBEPOETIN ALFA
     Indication: NEPHROGENIC ANAEMIA
     Dosage: 10 MICROGRAM, QWK
     Route: 058
  3. DARBEPOETIN ALFA [Suspect]
     Active Substance: DARBEPOETIN ALFA
     Dosage: 15 MICROGRAM, Q2WK
     Route: 058

REACTIONS (2)
  - Azotaemia [Unknown]
  - Therapeutic product effect incomplete [Unknown]
